FAERS Safety Report 19904363 (Version 1)
Quarter: 2021Q3

REPORT INFORMATION
  Report Type: Report from Study
  Country: US (occurrence: US)
  Receive Date: 20210930
  Receipt Date: 20210930
  Transmission Date: 20211014
  Serious: Yes (Other)
  Sender: FDA-Public Use
  Company Number: US-ASTRAZENECA-2021A748069

PATIENT
  Age: 33895 Day
  Sex: Female

DRUGS (1)
  1. CALQUENCE [Suspect]
     Active Substance: ACALABRUTINIB
     Indication: CHRONIC LYMPHOCYTIC LEUKAEMIA
     Route: 048

REACTIONS (5)
  - Pelvic fracture [Unknown]
  - Mouth haemorrhage [Recovered/Resolved]
  - Gait disturbance [Unknown]
  - Speech disorder [Unknown]
  - Fall [Unknown]

NARRATIVE: CASE EVENT DATE: 20210716
